FAERS Safety Report 21615578 (Version 1)
Quarter: 2022Q4

REPORT INFORMATION
  Report Type: Spontaneous
  Country: US (occurrence: US)
  Receive Date: 20221118
  Receipt Date: 20221118
  Transmission Date: 20230113
  Serious: No
  Sender: FDA-Public Use
  Company Number: US-VIIV HEALTHCARE LIMITED-US2022AMR164803

PATIENT
  Sex: Female

DRUGS (4)
  1. RILPIVIRINE [Suspect]
     Active Substance: RILPIVIRINE
     Indication: Product used for unknown indication
     Dosage: UNK,600 MG / 3ML CABOTEGRAVIR AND 900 MG / 3ML RILPIVERINE
     Route: 065
  2. RILPIVIRINE [Suspect]
     Active Substance: RILPIVIRINE
     Dosage: UNK,600 MG / 3ML CABOTEGRAVIR AND 900 MG / 3ML RILPIVERINE
     Route: 065
  3. CABOTEGRAVIR [Suspect]
     Active Substance: CABOTEGRAVIR
     Indication: Product used for unknown indication
     Dosage: UNK,600 MG / 3ML CABOTEGRAVIR AND 900 MG / 3ML RILPIVERINE
     Route: 065
  4. CABOTEGRAVIR [Suspect]
     Active Substance: CABOTEGRAVIR
     Dosage: UNK,600 MG / 3ML CABOTEGRAVIR AND 900 MG / 3ML RILPIVERINE
     Route: 065

REACTIONS (2)
  - Injection site infection [Recovered/Resolved]
  - Injection site nodule [Unknown]
